FAERS Safety Report 6219390-2 (Version None)
Quarter: 2009Q2

REPORT INFORMATION
  Report Type: 
  Country: None (occurrence: None)
  Receive Date: 20090609
  Receipt Date: 20090527
  Transmission Date: 20091009
  Serious: Yes (Hospitalization)
  Sender: FDA-Public Use
  Company Number: JP-BIOGENIDEC-2009BI016637

PATIENT
  Age: 51 Year
  Sex: Female

DRUGS (15)
  1. AVONEX [Suspect]
     Indication: RELAPSING-REMITTING MULTIPLE SCLEROSIS
     Route: 030
     Dates: start: 20090317
  2. AVONEX [Suspect]
     Route: 030
     Dates: start: 20090324, end: 20090513
  3. PREDNISOLONE [Concomitant]
     Indication: RELAPSING-REMITTING MULTIPLE SCLEROSIS
     Route: 048
     Dates: start: 20081112, end: 20090408
  4. LANDSEN [Concomitant]
     Dates: start: 20081101
  5. CYANOCOBALAMIN [Concomitant]
     Indication: DRUG USE FOR UNKNOWN INDICATION
     Dates: start: 20081101
  6. LIPOZARD [Concomitant]
     Dates: start: 20090201
  7. ALFAROL [Concomitant]
     Dates: start: 20090201
  8. ACTOS [Concomitant]
     Dates: start: 20090201
  9. EVISTA [Concomitant]
     Dates: start: 20090201
  10. LUVOX [Concomitant]
     Dates: start: 20090201
  11. RESLIN [Concomitant]
     Dates: start: 20090201
  12. KAMA [Concomitant]
     Dates: start: 20090201
  13. BLADDERON [Concomitant]
     Dates: start: 20090401
  14. AMARYL [Concomitant]
     Indication: DRUG USE FOR UNKNOWN INDICATION
     Dates: start: 20090501
  15. GASTER D [Concomitant]
     Dates: start: 20090423

REACTIONS (3)
  - MALAISE [None]
  - OPTIC NEURITIS [None]
  - OROPHARYNGEAL PAIN [None]
